FAERS Safety Report 8880911 (Version 2)
Quarter: 2012Q4

REPORT INFORMATION
  Report Type: 
  Country: US (occurrence: US)
  Receive Date: 20121101
  Receipt Date: 20121120
  Transmission Date: 20130627
  Serious: Yes (Other)
  Sender: FDA-Public Use
  Company Number: US-TEVA-366987USA

PATIENT
  Age: 72 Year
  Sex: Male
  Weight: 65.83 kg

DRUGS (6)
  1. COPAXONE [Suspect]
     Indication: MULTIPLE SCLEROSIS
     Dosage: QD
     Route: 058
     Dates: start: 200003
  2. LISINOPRIL [Concomitant]
     Indication: HYPERTENSION
     Dosage: 10 Milligram Daily;
     Route: 048
  3. FIBERCON [Concomitant]
     Indication: CONSTIPATION
     Route: 048
  4. SURFAC [Concomitant]
     Indication: CONSTIPATION
  5. TAMSULOSIN [Concomitant]
     Dosage: .4 Milligram Daily;
  6. SIMVASTATIN [Concomitant]
     Dosage: 20 Milligram Daily;

REACTIONS (5)
  - Urine flow decreased [Not Recovered/Not Resolved]
  - Urine oxalate increased [Not Recovered/Not Resolved]
  - Weight decreased [Not Recovered/Not Resolved]
  - Prostate cancer [Not Recovered/Not Resolved]
  - Nephrolithiasis [Not Recovered/Not Resolved]
